FAERS Safety Report 9069789 (Version 1)
Quarter: 2013Q1

REPORT INFORMATION
  Report Type: Spontaneous
  Country: US (occurrence: US)
  Receive Date: 20130215
  Receipt Date: 20130215
  Transmission Date: 20140127
  Serious: Yes (Hospitalization)
  Sender: FDA-Public Use
  Company Number: US-B.I. PHARMACEUTICALS,INC./RIDGEFIELD-2013-BI-03891BP

PATIENT
  Age: 77 None
  Sex: Female

DRUGS (9)
  1. PRADAXA [Suspect]
     Indication: CEREBROVASCULAR ACCIDENT
     Dosage: 300 MG
     Route: 048
     Dates: start: 20110601
  2. PRADAXA [Suspect]
     Indication: INTRACRANIAL ANEURYSM
  3. SIMVASTATIN [Concomitant]
     Dosage: 20 MG
     Route: 048
  4. FOLIC ACID [Concomitant]
     Dosage: 1 MG
     Route: 048
  5. METOPROLOL TARTRATE [Concomitant]
     Dosage: 50 MG
     Route: 048
  6. KLOR CON 8 MEQ [Concomitant]
     Dosage: 8 MEQ
     Route: 048
  7. OMEPRAZOLE [Concomitant]
     Dosage: 20 MG
     Route: 048
  8. LASIX [Concomitant]
     Dosage: 40 MG
     Route: 048
  9. ALBUTEROL SULFATE [Concomitant]
     Indication: BRONCHITIS
     Route: 055

REACTIONS (4)
  - Dyspnoea [Recovered/Resolved]
  - Cystitis haemorrhagic [Unknown]
  - Bronchitis [Recovered/Resolved]
  - Pneumonia [Recovered/Resolved]
